FAERS Safety Report 21389411 (Version 1)
Quarter: 2022Q3

REPORT INFORMATION
  Report Type: Spontaneous
  Country: US (occurrence: US)
  Receive Date: 20220929
  Receipt Date: 20220929
  Transmission Date: 20221026
  Serious: No
  Sender: FDA-Public Use
  Company Number: US-RECORDATI RARE DISEASES INC.-2022001890

PATIENT
  Age: 28 Year
  Sex: Female

DRUGS (3)
  1. PANHEMATIN [Suspect]
     Active Substance: HEMIN
     Indication: Porphyria
     Dosage: 347 MILLIGRAM, SINGLE
     Route: 042
     Dates: start: 20220502, end: 20220502
  2. COLACE [Concomitant]
     Active Substance: DOCUSATE SODIUM
     Indication: Product used for unknown indication
     Dosage: 100 MILLIGRAM, BEDTIME PRN
     Route: 048
  3. PHOSPHA 250 NEUTRAL [Concomitant]
     Active Substance: POTASSIUM PHOSPHATE, MONOBASIC\SODIUM PHOSPHATE, DIBASIC, ANHYDROUS\SODIUM PHOSPHATE, MONOBASIC, MON
     Indication: Product used for unknown indication
     Dosage: 250 MILLIGRAM, TWO TABLETS, BID
     Route: 048

REACTIONS (3)
  - Burning sensation [Recovered/Resolved]
  - Vein disorder [Unknown]
  - Phlebitis [Recovered/Resolved]

NARRATIVE: CASE EVENT DATE: 20220502
